FAERS Safety Report 22897988 (Version 3)
Quarter: 2024Q1

REPORT INFORMATION
  Report Type: Spontaneous
  Country: US (occurrence: US)
  Receive Date: 20230903
  Receipt Date: 20240313
  Transmission Date: 20240410
  Serious: No
  Sender: FDA-Public Use
  Company Number: US-LUPIN PHARMACEUTICALS INC.-2023-07259

PATIENT

DRUGS (1)
  1. ALBUTEROL SULFATE [Suspect]
     Active Substance: ALBUTEROL SULFATE
     Indication: Asthma
     Dosage: UNK, PRN (2 PUFFS EVERY 4 HOURS AS NEEDED )
     Dates: start: 202307

REACTIONS (5)
  - Dyspnoea [Unknown]
  - Asthma [Unknown]
  - Product preparation error [Unknown]
  - Device delivery system issue [Unknown]
  - Device deposit issue [Unknown]
